FAERS Safety Report 4751694-2 (Version None)
Quarter: 2005Q3

REPORT INFORMATION
  Report Type: 
  Country: None (occurrence: None)
  Receive Date: 20050823
  Receipt Date: 20050823
  Transmission Date: 20060218
  Serious: Yes (Life-Threatening, Disabling)
  Sender: FDA-Public Use
  Company Number: None

PATIENT
  Sex: Female
  Weight: 99.7913 kg

DRUGS (2)
  1. NARDIL [Suspect]
     Indication: AGORAPHOBIA
     Dosage: 30 MIL TWICE A DAY PO
     Route: 048
  2. NARDIL [Suspect]
     Indication: DEPRESSION
     Dosage: 30 MIL TWICE A DAY PO
     Route: 048

REACTIONS (10)
  - ABNORMAL BEHAVIOUR [None]
  - AGORAPHOBIA [None]
  - ANXIETY [None]
  - DEPRESSION [None]
  - DISEASE RECURRENCE [None]
  - DRUG INEFFECTIVE [None]
  - FEAR [None]
  - LOSS OF EMPLOYMENT [None]
  - PHARMACEUTICAL PRODUCT COMPLAINT [None]
  - SOMNOLENCE [None]
